FAERS Safety Report 15295641 (Version 3)
Quarter: 2018Q4

REPORT INFORMATION
  Report Type: Report from Study
  Country: US (occurrence: US)
  Receive Date: 20180820
  Receipt Date: 20181109
  Transmission Date: 20190204
  Serious: No
  Sender: FDA-Public Use
  Company Number: US-SA-2018SA225616

PATIENT
  Age: 28 Year
  Sex: Male

DRUGS (2)
  1. DUPILUMAB [Suspect]
     Active Substance: DUPILUMAB
     Indication: DERMATITIS ATOPIC
     Dosage: 600 MG, 1X
     Route: 058
     Dates: start: 2018, end: 2018
  2. DUPILUMAB [Suspect]
     Active Substance: DUPILUMAB
     Dosage: 300 MG, QOW
     Dates: start: 2018

REACTIONS (8)
  - Dry skin [Not Recovered/Not Resolved]
  - Lacrimation increased [Unknown]
  - Ocular hyperaemia [Unknown]
  - Erythema [Not Recovered/Not Resolved]
  - Vision blurred [Unknown]
  - Eye pruritus [Unknown]
  - Product dose omission [Unknown]
  - Alopecia [Not Recovered/Not Resolved]

NARRATIVE: CASE EVENT DATE: 2018
